FAERS Safety Report 10018399 (Version 1)
Quarter: 2014Q1

REPORT INFORMATION
  Report Type: Spontaneous
  Country: US (occurrence: None)
  Receive Date: 20140314
  Receipt Date: 20140314
  Transmission Date: 20141002
  Serious: Yes (Other)
  Sender: FDA-Public Use
  Company Number: None

PATIENT
  Age: 64 Year
  Sex: Female
  Weight: 52.16 kg

DRUGS (1)
  1. LATANOPROST [Suspect]
     Indication: OPEN ANGLE GLAUCOMA
     Dosage: 1 DROP ?ONCE DAILY?INTO THE EYE
     Dates: start: 20131219, end: 20140131

REACTIONS (2)
  - Eye infection [None]
  - Drug hypersensitivity [None]
